FAERS Safety Report 10056251 (Version 1)
Quarter: 2014Q2

REPORT INFORMATION
  Report Type: Spontaneous
  Country: US (occurrence: None)
  Receive Date: 20140401
  Receipt Date: 20140401
  Transmission Date: 20141212
  Serious: Yes (Other)
  Sender: FDA-Public Use
  Company Number: AUR-APL-2014-03854

PATIENT
  Age: 40 Year
  Sex: Female

DRUGS (3)
  1. NEVIRAPINE (NEVIRAPINE) [Suspect]
     Indication: PRODUCT USED FOR UNKNOWN INDICATION
     Dosage: (400 MG,1 D)
     Route: 048
  2. TRUVADA [Suspect]
     Indication: PRODUCT USED FOR UNKNOWN INDICATION
     Route: 048
     Dates: end: 20131112
  3. EPZICOM [Suspect]
     Indication: PRODUCT USED FOR UNKNOWN INDICATION
     Route: 048
     Dates: start: 20131112

REACTIONS (5)
  - Disseminated tuberculosis [None]
  - Ascites [None]
  - Maternal exposure during pregnancy [None]
  - Oligohydramnios [None]
  - Abortion spontaneous [None]
